FAERS Safety Report 6603102-4 (Version None)
Quarter: 2010Q1

REPORT INFORMATION
  Report Type: 
  Country: None (occurrence: None)
  Receive Date: 20100226
  Receipt Date: 20100222
  Transmission Date: 20100710
  Serious: Yes (Hospitalization)
  Sender: FDA-Public Use
  Company Number: PHHO2007CH18998

PATIENT
  Sex: Female
  Weight: 56 kg

DRUGS (4)
  1. ACLASTA/ZOLEDRONATE T29581+A+SOLINJ [Suspect]
     Indication: OSTEOPOROSIS POSTMENOPAUSAL
     Dosage: 5 MG ONCE A YEAR
     Route: 042
     Dates: start: 20060518
  2. CALCIUM [Concomitant]
     Indication: OSTEOPOROSIS POSTMENOPAUSAL
  3. VITAMIN D [Concomitant]
     Indication: OSTEOPOROSIS POSTMENOPAUSAL
  4. CONDROSULF [Concomitant]
     Indication: OSTEOARTHRITIS
     Dosage: 800 UNK, QD
     Route: 048
     Dates: start: 20021231

REACTIONS (7)
  - DEVICE FAILURE [None]
  - DISEASE PROGRESSION [None]
  - DRUG INEFFECTIVE [None]
  - FEMUR FRACTURE [None]
  - HIP ARTHROPLASTY [None]
  - OSTEOARTHRITIS [None]
  - OSTEOSYNTHESIS [None]
